FAERS Safety Report 4998478-8 (Version None)
Quarter: 2006Q2

REPORT INFORMATION
  Report Type: 
  Country: None (occurrence: None)
  Receive Date: 20060508
  Receipt Date: 20060428
  Transmission Date: 20061013
  Serious: Yes (Other)
  Sender: FDA-Public Use
  Company Number: 2006-04-2073

PATIENT
  Age: 69 Year
  Sex: Male
  Weight: 79 kg

DRUGS (5)
  1. PEG-INTRON [Suspect]
     Indication: HEPATITIS C
     Dosage: 100 MCG QW SUBCUTANEOUS
     Route: 058
     Dates: start: 20060412, end: 20060419
  2. REBETOL [Suspect]
     Indication: HEPATITIS C
     Dosage: 800 MG ORAL
     Route: 048
     Dates: start: 20060412, end: 20060423
  3. CILNIDIPINE [Concomitant]
  4. JUVELA NICOTINATE [Concomitant]
  5. CINAL [Concomitant]

REACTIONS (3)
  - RETINAL DETACHMENT [None]
  - RETINAL HAEMORRHAGE [None]
  - VISUAL FIELD DEFECT [None]
